FAERS Safety Report 4279628-8 (Version None)
Quarter: 2004Q1

REPORT INFORMATION
  Report Type: 
  Country: None (occurrence: None)
  Receive Date: 20040123
  Receipt Date: 20040114
  Transmission Date: 20041129
  Serious: Yes (Death)
  Sender: FDA-Public Use
  Company Number: JP-JNJFOC-20040102852

PATIENT
  Age: 63 Year
  Sex: Female

DRUGS (12)
  1. FENTANYL [Suspect]
     Indication: CANCER PAIN
     Dosage: SEE IMAGE
     Route: 062
     Dates: start: 20030527, end: 20030530
  2. FENTANYL [Suspect]
     Indication: CANCER PAIN
     Dosage: SEE IMAGE
     Route: 062
     Dates: start: 20030530, end: 20030603
  3. FENTANYL [Suspect]
     Indication: CANCER PAIN
     Dosage: SEE IMAGE
     Route: 062
     Dates: start: 20030603, end: 20030609
  4. ALLOPURINOL [Concomitant]
  5. SODIUM BICARBONATE IN PLASTIC CONTAINER [Concomitant]
  6. MEDROXYPROGESTERONE ACETATE (BARBITATE) [Concomitant]
  7. REBAMIPIDE (REBAMIPIDE) [Concomitant]
  8. CALCIUM POLYSTYRENE SULFONATE (CALCIUM POLYSTYRENE SULFONATE) [Concomitant]
  9. AZULENE (AZULENE) [Concomitant]
  10. MAGNESIUM OXIDE (MAGNESIUM OXIDE) [Concomitant]
  11. LOXOPROFEN SODIUM (LOXOPROFEN SODIUM) [Concomitant]
  12. INDOMETHACIN [Concomitant]

REACTIONS (1)
  - LYMPHANGIOSIS CARCINOMATOSA [None]
